FAERS Safety Report 13794760 (Version 1)
Quarter: 2017Q3

REPORT INFORMATION
  Report Type: Report from Study
  Country: US (occurrence: US)
  Receive Date: 20170726
  Receipt Date: 20170726
  Transmission Date: 20171127
  Serious: Yes (Hospitalization)
  Sender: FDA-Public Use
  Company Number: US-OTSUKA-2017_015915

PATIENT
  Age: 40 Year
  Sex: Female

DRUGS (1)
  1. BREXPIPRAZOLE [Suspect]
     Active Substance: BREXPIPRAZOLE
     Indication: PRODUCT USED FOR UNKNOWN INDICATION
     Dosage: 2 CC, QM
     Route: 065

REACTIONS (6)
  - Off label use [Unknown]
  - Adverse drug reaction [Unknown]
  - Loss of consciousness [Unknown]
  - Incorrect product formulation administered [Unknown]
  - Hospitalisation [Unknown]
  - Balance disorder [Unknown]
